FAERS Safety Report 4437377-7 (Version None)
Quarter: 2004Q3

REPORT INFORMATION
  Report Type: 
  Country: None (occurrence: None)
  Receive Date: 20040726
  Receipt Date: 20040329
  Transmission Date: 20050211
  Serious: No
  Sender: FDA-Public Use
  Company Number: USA040363499

PATIENT
  Sex: Female

DRUGS (13)
  1. FORTEO [Suspect]
     Indication: OSTEOPOROSIS
     Dates: start: 20040310
  2. FORTEO [Suspect]
     Indication: THYROID DISORDER
     Dates: start: 20040310
  3. SYNTHROID (LEVOTHYROXINE SODUM) [Concomitant]
  4. LASIX [Concomitant]
  5. CORDARONE [Concomitant]
  6. MONOPRIL [Concomitant]
  7. ASPIRIN [Concomitant]
  8. POTASSIUM [Concomitant]
  9. ASACOL [Concomitant]
  10. VITAMIN D [Concomitant]
  11. LESCOL [Concomitant]
  12. PYRANTEL [Concomitant]
  13. CALCIUM [Concomitant]

REACTIONS (5)
  - ABDOMINAL DISTENSION [None]
  - ARTHRALGIA [None]
  - HEADACHE [None]
  - NAUSEA [None]
  - VOMITING [None]
